FAERS Safety Report 6234121-8 (Version None)
Quarter: 2009Q2

REPORT INFORMATION
  Report Type: 
  Country: None (occurrence: None)
  Receive Date: 20090618
  Receipt Date: 20090609
  Transmission Date: 20091009
  Serious: Yes (Other)
  Sender: FDA-Public Use
  Company Number: US-BAYER-200918822NA

PATIENT
  Age: 29 Year
  Sex: Female
  Weight: 113 kg

DRUGS (1)
  1. MIRENA [Suspect]
     Indication: CONTRACEPTION
     Dosage: CONTINUOUS
     Route: 015
     Dates: start: 20040901

REACTIONS (6)
  - BLOOD PRESSURE INCREASED [None]
  - IUCD COMPLICATION [None]
  - PREGNANCY WITH CONTRACEPTIVE DEVICE [None]
  - UNEVALUABLE EVENT [None]
  - UTERINE RUPTURE [None]
  - VAGINAL HAEMORRHAGE [None]
